FAERS Safety Report 7773242-5 (Version None)
Quarter: 2011Q3

REPORT INFORMATION
  Report Type: 
  Country: None (occurrence: None)
  Receive Date: 20110922
  Receipt Date: 20110919
  Transmission Date: 20111222
  Serious: Yes (Other)
  Sender: FDA-Public Use
  Company Number: US-VERTEX PHARMACEUTICALS INC.-AE-2011-001668

PATIENT
  Sex: Male
  Weight: 88.984 kg

DRUGS (3)
  1. RIBASPHERE [Concomitant]
     Indication: HEPATITIS C
     Dates: start: 20110902
  2. INCIVEK [Suspect]
     Indication: HEPATITIS C
     Dates: start: 20110902
  3. PEGASYS [Concomitant]
     Indication: HEPATITIS C
     Route: 058
     Dates: start: 20110902

REACTIONS (4)
  - FEELING ABNORMAL [None]
  - FATIGUE [None]
  - GRAND MAL CONVULSION [None]
  - HYPERSOMNIA [None]
